APPROVED DRUG PRODUCT: VIRAMUNE
Active Ingredient: NEVIRAPINE
Strength: 50MG/5ML **Federal Register determination that product was not discontinued or withdrawn for safety or effectiveness reasons**
Dosage Form/Route: SUSPENSION;ORAL
Application: N020933 | Product #001
Applicant: BOEHRINGER INGELHEIM PHARMACEUTICALS INC
Approved: Sep 11, 1998 | RLD: Yes | RS: No | Type: DISCN